FAERS Safety Report 13392828 (Version 2)
Quarter: 2017Q2

REPORT INFORMATION
  Report Type: Spontaneous
  Country: DE (occurrence: DE)
  Receive Date: 20170331
  Receipt Date: 20170407
  Transmission Date: 20170830
  Serious: Yes (Life-Threatening, Hospitalization)
  Sender: FDA-Public Use
  Company Number: DE-JNJFOC-20170330899

PATIENT
  Age: 76 Year
  Sex: Male

DRUGS (2)
  1. XGEVA [Concomitant]
     Active Substance: DENOSUMAB
     Indication: PROSTATE CANCER METASTATIC
     Route: 065
  2. ZYTIGA [Suspect]
     Active Substance: ABIRATERONE ACETATE
     Indication: PROSTATE CANCER METASTATIC
     Route: 048
     Dates: start: 20170202

REACTIONS (2)
  - Renal failure [Unknown]
  - Rhabdomyolysis [Unknown]

NARRATIVE: CASE EVENT DATE: 20170202
